FAERS Safety Report 14387407 (Version 2)
Quarter: 2018Q1

REPORT INFORMATION
  Report Type: Report from Study
  Country: JP (occurrence: JP)
  Receive Date: 20180115
  Receipt Date: 20180125
  Transmission Date: 20180509
  Serious: Yes (Death)
  Sender: FDA-Public Use
  Company Number: JP-DSJP-DSJ-2018-100443

PATIENT

DRUGS (6)
  1. HALFDIGOXIN [Concomitant]
     Active Substance: DIGOXIN
     Indication: ATRIAL FIBRILLATION
     Dosage: 0.125MG/DAY
     Route: 048
     Dates: end: 20171003
  2. TRESIBA [Concomitant]
     Active Substance: INSULIN DEGLUDEC
     Dosage: 11 IU/DAY
     Route: 058
     Dates: end: 20171003
  3. EDOXABAN [Suspect]
     Active Substance: EDOXABAN TOSYLATE
     Indication: ATRIAL FIBRILLATION
     Dosage: 30 MG, QD
     Route: 048
     Dates: start: 20170216, end: 20171003
  4. NOVORAPID [Concomitant]
     Active Substance: INSULIN ASPART
     Dosage: 20 IU/DAY
     Route: 058
     Dates: end: 20171003
  5. PROTECADIN [Concomitant]
     Active Substance: LAFUTIDINE
     Dosage: 20MG/DAY
     Route: 048
     Dates: end: 20171003
  6. WARFARIN                           /00014803/ [Concomitant]
     Active Substance: WARFARIN
     Dosage: 2.5MG/DAY
     Route: 048
     Dates: end: 20170215

REACTIONS (1)
  - Cardio-respiratory arrest [Fatal]

NARRATIVE: CASE EVENT DATE: 20171003
